FAERS Safety Report 9512210 (Version 14)
Quarter: 2018Q2

REPORT INFORMATION
  Report Type: Report from Study
  Country: CA (occurrence: CA)
  Receive Date: 20130910
  Receipt Date: 20180427
  Transmission Date: 20180711
  Serious: Yes (Other)
  Sender: FDA-Public Use
  Company Number: PHHY2012CA123288

PATIENT
  Age: 72 Year
  Sex: Male

DRUGS (4)
  1. SOMAVERT [Concomitant]
     Active Substance: PEGVISOMANT
     Indication: PRODUCT USED FOR UNKNOWN INDICATION
     Dosage: Q3W
     Route: 058
  2. COLCHICINE. [Suspect]
     Active Substance: COLCHICINE
     Indication: PRODUCT USED FOR UNKNOWN INDICATION
     Dosage: UNK
     Route: 065
     Dates: start: 20120902
  3. TASIGNA [Suspect]
     Active Substance: NILOTINIB
     Indication: CHRONIC MYELOID LEUKAEMIA
     Dosage: 400 MG, BID
     Route: 048
     Dates: start: 201006
  4. TYLENOL [Concomitant]
     Active Substance: ACETAMINOPHEN
     Indication: PRODUCT USED FOR UNKNOWN INDICATION
     Dosage: UNK, PRN
     Route: 065

REACTIONS (23)
  - Dizziness [Unknown]
  - Abdominal pain upper [Unknown]
  - Cough [Unknown]
  - Peripheral swelling [Recovered/Resolved]
  - Dry eye [Unknown]
  - Visual impairment [Unknown]
  - Blood pressure increased [Unknown]
  - Blood pressure fluctuation [Unknown]
  - Malaise [Recovered/Resolved]
  - Ocular hyperaemia [Unknown]
  - Ear pain [Unknown]
  - Myalgia [Unknown]
  - Fatigue [Unknown]
  - Hiccups [Recovered/Resolved]
  - Fear [Recovered/Resolved]
  - Hypoacusis [Unknown]
  - Eye pain [Unknown]
  - Gout [Recovering/Resolving]
  - Pain in extremity [Recovered/Resolved]
  - Headache [Unknown]
  - Diarrhoea [Recovered/Resolved]
  - Vomiting [Recovered/Resolved]
  - Nasopharyngitis [Recovering/Resolving]

NARRATIVE: CASE EVENT DATE: 201408
